FAERS Safety Report 16543131 (Version 1)
Quarter: 2019Q3

REPORT INFORMATION
  Report Type: Spontaneous
  Country: DE (occurrence: DE)
  Receive Date: 20190709
  Receipt Date: 20190709
  Transmission Date: 20191004
  Serious: Yes (Other)
  Sender: FDA-Public Use
  Company Number: DE-SUN PHARMACEUTICAL INDUSTRIES LTD-2019RR-213158

PATIENT
  Age: 30 Year
  Sex: Female
  Weight: 75 kg

DRUGS (1)
  1. CIPROFLOXACIN. [Suspect]
     Active Substance: CIPROFLOXACIN
     Indication: PRODUCT USED FOR UNKNOWN INDICATION
     Dosage: 1 DOSAGE FORM, TID
     Route: 048
     Dates: start: 20161010, end: 20161012

REACTIONS (15)
  - Social anxiety disorder [Recovered/Resolved with Sequelae]
  - Dyspnoea [Unknown]
  - Vomiting [Unknown]
  - Panic disorder [Recovered/Resolved with Sequelae]
  - Claustrophobia [Recovered/Resolved with Sequelae]
  - Anxiety [Recovered/Resolved with Sequelae]
  - Agoraphobia [Recovered/Resolved with Sequelae]
  - Impaired quality of life [Unknown]
  - Hyperhidrosis [Unknown]
  - Diarrhoea [Unknown]
  - Muscular weakness [Unknown]
  - Derealisation [Unknown]
  - Suicidal ideation [Unknown]
  - Palpitations [Unknown]
  - Anxiety [Unknown]

NARRATIVE: CASE EVENT DATE: 20161010
